FAERS Safety Report 4762125-0 (Version None)
Quarter: 2005Q3

REPORT INFORMATION
  Report Type: 
  Country: None (occurrence: None)
  Receive Date: 20050901
  Receipt Date: 20050503
  Transmission Date: 20060218
  Serious: No
  Sender: FDA-Public Use
  Company Number: 200510881BWH

PATIENT
  Sex: Male

DRUGS (5)
  1. LEVITRA [Suspect]
     Dosage: 10 MG, TOTAL DAILY, ORAL
     Route: 048
  2. EFFEXOR [Suspect]
  3. IBUPROFEN [Concomitant]
  4. VICODIN [Concomitant]
  5. WELLBUTRIN [Concomitant]

REACTIONS (3)
  - DRUG INEFFECTIVE [None]
  - DRUG INTERACTION [None]
  - ERECTILE DYSFUNCTION [None]
